FAERS Safety Report 19365437 (Version 2)
Quarter: 2021Q2

REPORT INFORMATION
  Report Type: Spontaneous
  Country: US (occurrence: US)
  Receive Date: 20210602
  Receipt Date: 20210610
  Transmission Date: 20210717
  Serious: No
  Sender: FDA-Public Use
  Company Number: US-LUPIN PHARMACEUTICALS INC.-2021-07920

PATIENT

DRUGS (2)
  1. ATOVAQUONE ORAL SUSPENSION [Suspect]
     Active Substance: ATOVAQUONE
     Indication: PNEUMONIA
     Dosage: 750 MG/5 ML (COUPLE OF YEARS)
     Route: 065
  2. MARIJUANA [Concomitant]
     Active Substance: CANNABIS SATIVA SUBSP. INDICA TOP
     Indication: PRODUCT USED FOR UNKNOWN INDICATION
     Dosage: UNK
     Route: 065

REACTIONS (7)
  - Dizziness [Unknown]
  - Back pain [Unknown]
  - Adverse event [Unknown]
  - Dyspnoea [Unknown]
  - Asthenia [Unknown]
  - Nerve compression [Unknown]
  - Fatigue [Unknown]
